FAERS Safety Report 7552516-7 (Version None)
Quarter: 2011Q2

REPORT INFORMATION
  Report Type: 
  Country: None (occurrence: None)
  Receive Date: 20110616
  Receipt Date: 20110603
  Transmission Date: 20111010
  Serious: Yes (Hospitalization, Other)
  Sender: FDA-Public Use
  Company Number: US-ELI_LILLY_AND_COMPANY-US201104001374

PATIENT
  Sex: Female
  Weight: 62.1 kg

DRUGS (11)
  1. MS CONTIN [Concomitant]
     Dosage: UNK, UNKNOWN
  2. CARDIZEM [Concomitant]
     Dosage: UNK, UNKNOWN
  3. PLAVIX [Concomitant]
     Dosage: UNK, UNKNOWN
  4. CALCIUM CARBONATE [Concomitant]
  5. FOLIC ACID [Concomitant]
     Dosage: UNK, UNKNOWN
  6. FORTEO [Suspect]
     Indication: OSTEOPOROSIS
     Dosage: 20 UG, QD
     Route: 058
     Dates: start: 20110101, end: 20110217
  7. JANUVIA [Concomitant]
  8. OYSCO [Concomitant]
     Dosage: UNK, UNKNOWN
  9. PREDNISONE [Concomitant]
     Dosage: UNK, UNKNOWN
     Route: 065
  10. INSULIN [Concomitant]
     Dosage: UNK, UNKNOWN
  11. VITAMIN D [Concomitant]

REACTIONS (12)
  - THYROID MASS [None]
  - MENTAL STATUS CHANGES [None]
  - COMA [None]
  - HAEMORRHAGE [None]
  - HYPERCALCAEMIA [None]
  - DEHYDRATION [None]
  - HAEMOGLOBIN DECREASED [None]
  - ABNORMAL BEHAVIOUR [None]
  - DUODENAL ULCER [None]
  - FAECES DISCOLOURED [None]
  - URINARY TRACT INFECTION [None]
  - COLD SWEAT [None]
